FAERS Safety Report 8785131 (Version 2)
Quarter: 2012Q4

REPORT INFORMATION
  Report Type: 
  Country: US (occurrence: US)
  Receive Date: 20120914
  Receipt Date: 20121112
  Transmission Date: 20130627
  Serious: Yes (Other)
  Sender: FDA-Public Use
  Company Number: US-JNJFOC-20120903594

PATIENT
  Age: 31 Year
  Sex: Female
  Weight: 65.32 kg

DRUGS (10)
  1. REMICADE [Suspect]
     Indication: SPONDYLOARTHROPATHY
     Dosage: 400 mg
     Route: 042
     Dates: start: 20100808, end: 20100818
  2. REMICADE [Suspect]
     Indication: SPONDYLOARTHROPATHY
     Dosage: infusion number 3
     Route: 042
     Dates: start: 20120829
  3. REMICADE [Suspect]
     Indication: SPONDYLOARTHROPATHY
     Route: 042
     Dates: start: 20120809
  4. REMICADE [Suspect]
     Indication: RHEUMATOID ARTHRITIS
     Dosage: 400 mg
     Route: 042
     Dates: start: 20100808, end: 20100818
  5. REMICADE [Suspect]
     Indication: RHEUMATOID ARTHRITIS
     Route: 042
     Dates: start: 20120809
  6. REMICADE [Suspect]
     Indication: RHEUMATOID ARTHRITIS
     Dosage: infusion number 3
     Route: 042
     Dates: start: 20120829
  7. SOLU MEDROL [Concomitant]
     Indication: PREMEDICATION
     Route: 065
  8. SOLU MEDROL [Concomitant]
     Indication: PREMEDICATION
     Route: 065
  9. ORTHO TRI-CYCLEN LO [Concomitant]
     Route: 065
  10. VITAMIN D [Concomitant]
     Route: 065

REACTIONS (10)
  - Rheumatoid arthritis [Recovered/Resolved]
  - Nerve compression [Recovered/Resolved]
  - Flushing [Recovered/Resolved]
  - Chest discomfort [Recovered/Resolved]
  - Oxygen saturation decreased [Recovered/Resolved]
  - Infusion related reaction [Recovered/Resolved]
  - Dyspnoea [Recovered/Resolved]
  - Rash pruritic [Recovered/Resolved]
  - Nausea [Recovered/Resolved]
  - Skin tightness [Unknown]
